FAERS Safety Report 19565007 (Version 1)
Quarter: 2021Q3

REPORT INFORMATION
  Report Type: Spontaneous
  Country: CN (occurrence: CN)
  Receive Date: 20210716
  Receipt Date: 20210716
  Transmission Date: 20211014
  Serious: Yes (Other)
  Sender: FDA-Public Use
  Company Number: CN-PFIZER INC-2021822879

PATIENT
  Age: 71 Year
  Sex: Male
  Weight: 47 kg

DRUGS (3)
  1. SUTENT [Suspect]
     Active Substance: SUNITINIB MALATE
     Indication: METASTASES TO LUNG
  2. SUTENT [Suspect]
     Active Substance: SUNITINIB MALATE
     Indication: CHEMOTHERAPY
     Dosage: 50 MG, 1X/DAY
     Route: 048
     Dates: start: 20210512, end: 20210609
  3. SUTENT [Suspect]
     Active Substance: SUNITINIB MALATE
     Indication: CANCER SURGERY

REACTIONS (4)
  - Platelet count decreased [Recovering/Resolving]
  - White blood cell count decreased [Recovering/Resolving]
  - Red blood cell count decreased [Recovering/Resolving]
  - Myelosuppression [Recovering/Resolving]

NARRATIVE: CASE EVENT DATE: 20210604
